FAERS Safety Report 17885386 (Version 5)
Quarter: 2022Q1

REPORT INFORMATION
  Report Type: Spontaneous
  Country: US (occurrence: US)
  Receive Date: 20200611
  Receipt Date: 20220222
  Transmission Date: 20220423
  Serious: No
  Sender: FDA-Public Use
  Company Number: US-BIOGEN-2017BI00365391

PATIENT
  Age: 57 Year
  Sex: Male

DRUGS (4)
  1. PLEGRIDY [Suspect]
     Active Substance: PEGINTERFERON BETA-1A
     Indication: Multiple sclerosis
     Route: 058
     Dates: start: 20151231, end: 20170503
  2. LYRICA [Concomitant]
     Active Substance: PREGABALIN
     Route: 065
  3. LYRICA [Concomitant]
     Active Substance: PREGABALIN
     Route: 065
  4. OMEPRAZOLE [Concomitant]
     Active Substance: OMEPRAZOLE
     Route: 065

REACTIONS (32)
  - Therapeutic product effect decreased [Recovered/Resolved]
  - Pain in extremity [Not Recovered/Not Resolved]
  - Arthritis [Not Recovered/Not Resolved]
  - Arthropathy [Not Recovered/Not Resolved]
  - Skin discolouration [Not Recovered/Not Resolved]
  - Renal function test abnormal [Not Recovered/Not Resolved]
  - Balance disorder [Not Recovered/Not Resolved]
  - Fatigue [Unknown]
  - Fibromyalgia [Unknown]
  - Gait disturbance [Unknown]
  - Visual impairment [Unknown]
  - Stress [Unknown]
  - Muscular weakness [Unknown]
  - Decreased immune responsiveness [Unknown]
  - Rash macular [Unknown]
  - Multiple sclerosis relapse [Unknown]
  - Drug intolerance [Unknown]
  - Fall [Recovered/Resolved]
  - Hypoaesthesia [Recovered/Resolved]
  - Tremor [Recovered/Resolved]
  - Vision blurred [Recovered/Resolved]
  - Musculoskeletal chest pain [Recovered/Resolved]
  - Dyspnoea [Recovered/Resolved]
  - Magnetic resonance imaging abnormal [Recovered/Resolved]
  - Inflammation [Recovered/Resolved]
  - Injection site pruritus [Not Recovered/Not Resolved]
  - Pain [Not Recovered/Not Resolved]
  - Injection site inflammation [Unknown]
  - Arthralgia [Unknown]
  - Asthenia [Unknown]
  - Pruritus [Unknown]
  - Liver function test increased [Recovered/Resolved]

NARRATIVE: CASE EVENT DATE: 20161201
